FAERS Safety Report 16658848 (Version 7)
Quarter: 2020Q1

REPORT INFORMATION
  Report Type: Report from Study
  Country: US (occurrence: US)
  Receive Date: 20190801
  Receipt Date: 20200213
  Transmission Date: 20200409
  Serious: Yes (Death, Hospitalization)
  Sender: FDA-Public Use
  Company Number: PHEH2019US031119

PATIENT
  Age: 87 Year
  Sex: Male

DRUGS (1)
  1. RYDAPT [Suspect]
     Active Substance: MIDOSTAURIN
     Indication: PRODUCT USED FOR UNKNOWN INDICATION
     Route: 065

REACTIONS (8)
  - Weight decreased [Unknown]
  - Death [Fatal]
  - Throat irritation [Unknown]
  - Gastrooesophageal reflux disease [Unknown]
  - Hypoacusis [Unknown]
  - Loss of consciousness [Unknown]
  - Vomiting [Unknown]
  - Pneumonia [Unknown]

NARRATIVE: CASE EVENT DATE: 20191225
